FAERS Safety Report 10148872 (Version 1)
Quarter: 2014Q2

REPORT INFORMATION
  Report Type: Spontaneous
  Country: CA (occurrence: CA)
  Receive Date: 20140502
  Receipt Date: 20140502
  Transmission Date: 20141212
  Serious: Yes (Other)
  Sender: FDA-Public Use
  Company Number: CA-ROCHE-1393484

PATIENT
  Age: 89 Year
  Sex: Female

DRUGS (8)
  1. TAMIFLU [Suspect]
     Indication: ANTIVIRAL PROPHYLAXIS
     Dosage: FREQUENCY:  EVERY OTHER DAY?LAST DOSE WAS TAKEN ON 29/APR/2014
     Route: 048
  2. TYLENOL [Concomitant]
  3. DONEPEZIL [Concomitant]
  4. MELATONIN [Concomitant]
  5. QUININE [Concomitant]
  6. RISEDRONATE [Concomitant]
  7. TRIAZIDE [Concomitant]
  8. RISPERIDONE [Concomitant]

REACTIONS (1)
  - Influenza [Not Recovered/Not Resolved]
